FAERS Safety Report 17223606 (Version 1)
Quarter: 2020Q1

REPORT INFORMATION
  Report Type: Spontaneous
  Country: SK (occurrence: SK)
  Receive Date: 20200102
  Receipt Date: 20200102
  Transmission Date: 20200409
  Serious: Yes (Hospitalization)
  Sender: FDA-Public Use
  Company Number: SK-ABBVIE-20K-260-3216357-00

PATIENT
  Sex: Male

DRUGS (4)
  1. CLENBUTEROL [Suspect]
     Active Substance: CLENBUTEROL
     Indication: PERFORMANCE ENHANCING PRODUCT USE
     Route: 065
  2. SOMATROPIN. [Suspect]
     Active Substance: SOMATROPIN
     Indication: PERFORMANCE ENHANCING PRODUCT USE
     Route: 065
  3. SOMATROPIN. [Suspect]
     Active Substance: SOMATROPIN
     Indication: OFF LABEL USE
  4. TESTOSTERONE. [Suspect]
     Active Substance: TESTOSTERONE
     Indication: PERFORMANCE ENHANCING PRODUCT USE
     Route: 065

REACTIONS (3)
  - Off label use [Unknown]
  - Hypertension [Unknown]
  - Drug abuse [Unknown]

NARRATIVE: CASE EVENT DATE: 201601
